FAERS Safety Report 5595692-8 (Version None)
Quarter: 2008Q1

REPORT INFORMATION
  Report Type: 
  Country: None (occurrence: None)
  Receive Date: 20080118
  Receipt Date: 20080115
  Transmission Date: 20080703
  Serious: Yes (Hospitalization)
  Sender: FDA-Public Use
  Company Number: PHEH2008US00850

PATIENT
  Sex: Female

DRUGS (1)
  1. RECLAST [Suspect]

REACTIONS (2)
  - CHEST PAIN [None]
  - HYPOXIA [None]
